FAERS Safety Report 15406169 (Version 1)
Quarter: 2018Q3

REPORT INFORMATION
  Report Type: Spontaneous
  Country: US (occurrence: US)
  Receive Date: 20180919
  Receipt Date: 20180919
  Transmission Date: 20181010
  Serious: Yes (Disabling)
  Sender: FDA-Public Use
  Company Number: None

PATIENT
  Age: 69 Year
  Sex: Female
  Weight: 38.1 kg

DRUGS (1)
  1. DIAZEPAM 5MG TABLETS RX# 0752046?11830?WALGREEN [Suspect]
     Active Substance: DIAZEPAM
     Indication: VERTIGO
     Dosage: ?          QUANTITY:1 DF DOSAGE FORM;?
     Route: 048

REACTIONS (3)
  - Adverse drug reaction [None]
  - Drug ineffective [None]
  - Product substitution issue [None]

NARRATIVE: CASE EVENT DATE: 20180718
